FAERS Safety Report 5834632-0 (Version None)
Quarter: 2008Q3

REPORT INFORMATION
  Report Type: 
  Country: None (occurrence: None)
  Receive Date: 20080801
  Receipt Date: 20080725
  Transmission Date: 20090109
  Serious: Yes (Death, Hospitalization, Other)
  Sender: FDA-Public Use
  Company Number: 50864

PATIENT
  Age: 70 Year
  Sex: Male

DRUGS (1)
  1. CISPLATIN ING. 50MG/50ML - BEDFORD LABS, INC. [Suspect]
     Indication: SQUAMOUS CELL CARCINOMA
     Dosage: IV
     Route: 042
     Dates: start: 20070820

REACTIONS (8)
  - ATRIAL FIBRILLATION [None]
  - DYSPHAGIA [None]
  - ELECTROLYTE IMBALANCE [None]
  - MYOCARDIAL ISCHAEMIA [None]
  - NEUTROPENIC SEPSIS [None]
  - PANCYTOPENIA [None]
  - PNEUMONIA KLEBSIELLA [None]
  - URINARY TRACT INFECTION [None]
